FAERS Safety Report 4776047-2 (Version None)
Quarter: 2005Q3

REPORT INFORMATION
  Report Type: 
  Country: None (occurrence: None)
  Receive Date: 20050922
  Receipt Date: 20050818
  Transmission Date: 20060218
  Serious: Yes (Other)
  Sender: FDA-Public Use
  Company Number: PHBS2005JP12046

PATIENT
  Age: 73 Year
  Sex: Female

DRUGS (2)
  1. ANAFRANIL [Suspect]
     Indication: MAJOR DEPRESSION
     Dosage: 150 MG/D
     Route: 041
     Dates: start: 20000501
  2. RITALIN [Suspect]
     Indication: MAJOR DEPRESSION
     Dosage: 20 MG/D
     Route: 048

REACTIONS (4)
  - HYPERHIDROSIS [None]
  - SEROTONIN SYNDROME [None]
  - THERAPEUTIC PRODUCT INEFFECTIVE [None]
  - TREMOR [None]
